FAERS Safety Report 22192082 (Version 1)
Quarter: 2023Q2

REPORT INFORMATION
  Report Type: Report from Study
  Country: MX (occurrence: MX)
  Receive Date: 20230410
  Receipt Date: 20230410
  Transmission Date: 20230722
  Serious: Yes (Other)
  Sender: FDA-Public Use
  Company Number: MX-002147023-NVSC2023MX081669

PATIENT
  Age: 28 Year
  Sex: Female
  Weight: 112 kg

DRUGS (3)
  1. MYFORTIC [Suspect]
     Active Substance: MYCOPHENOLATE SODIUM
     Indication: Immunosuppression
     Dosage: 3 DOSAGE FORM DAILY (STARTED ON THE FIRST MONTH)
     Route: 048
     Dates: start: 20230130
  2. MYFORTIC [Suspect]
     Active Substance: MYCOPHENOLATE SODIUM
     Indication: Eye swelling
     Dosage: 4 DOSAGE FORM DAILY (SECOND MONTH)
     Route: 048
  3. MYFORTIC [Suspect]
     Active Substance: MYCOPHENOLATE SODIUM
     Dosage: 5 DOSAGE FORM DAILY (THIRD MONTH) (TWO DURING BREAKFAST, TWO WITH THE MEAL, AND ONE AT NIGHT (CURREN
     Route: 048

REACTIONS (2)
  - Stevens-Johnson syndrome [Unknown]
  - Off label use [Not Recovered/Not Resolved]

NARRATIVE: CASE EVENT DATE: 20230130
